FAERS Safety Report 8928023 (Version 2)
Quarter: 2012Q4

REPORT INFORMATION
  Report Type: Spontaneous
  Country: US (occurrence: None)
  Receive Date: 20121120
  Receipt Date: 20121127
  Transmission Date: 20130627
  Serious: Yes (Death, Hospitalization)
  Sender: FDA-Public Use
  Company Number: 2012AP003917

PATIENT
  Age: 51 Year
  Sex: Female

DRUGS (2)
  1. CLONAZEPAM TABLETS, USP [Suspect]
     Indication: INTENTIONAL OVERDOSE
  2. CARISOPRODOL [Suspect]
     Indication: INTENTIONAL OVERDOSE

REACTIONS (15)
  - Unresponsive to stimuli [None]
  - Pulse pressure decreased [None]
  - Pneumonia aspiration [None]
  - Toxicity to various agents [None]
  - Tachypnoea [None]
  - Hyperhidrosis [None]
  - Pain [None]
  - Urinary bladder rupture [None]
  - Soft tissue haemorrhage [None]
  - Intentional overdose [None]
  - Pelvic haemorrhage [None]
  - Hepatic fibrosis [None]
  - Pneumonitis [None]
  - General physical health deterioration [None]
  - Bronchopneumonia [None]
